FAERS Safety Report 9413738 (Version 1)
Quarter: 2013Q3

REPORT INFORMATION
  Report Type: Spontaneous
  Country: US (occurrence: US)
  Receive Date: 20130722
  Receipt Date: 20130722
  Transmission Date: 20140515
  Serious: Yes (Disabling, Other)
  Sender: FDA-Public Use
  Company Number: PHEH2013US015348

PATIENT
  Age: 28 Year
  Sex: Female

DRUGS (1)
  1. SIGNIFOR [Suspect]
     Indication: PITUITARY-DEPENDENT CUSHING^S SYNDROME
     Route: 058
     Dates: start: 201301, end: 201301

REACTIONS (3)
  - Staphylococcal infection [Recovered/Resolved]
  - Furuncle [Recovered/Resolved]
  - Blood glucose increased [Not Recovered/Not Resolved]
